FAERS Safety Report 23228351 (Version 8)
Quarter: 2025Q3

REPORT INFORMATION
  Report Type: Report from Study
  Country: US (occurrence: US)
  Receive Date: 20231125
  Receipt Date: 20250709
  Transmission Date: 20251020
  Serious: Yes (Other)
  Sender: TAKEDA
  Company Number: US-TAKEDA-2023TUS109209

PATIENT
  Sex: Male

DRUGS (25)
  1. PONATINIB [Suspect]
     Active Substance: PONATINIB
     Indication: Acute lymphocytic leukaemia (in remission)
     Dosage: 30 MILLIGRAM, QD
  2. PONATINIB [Suspect]
     Active Substance: PONATINIB
     Indication: Acute lymphocytic leukaemia
  3. PONATINIB [Suspect]
     Active Substance: PONATINIB
     Dosage: 30 MILLIGRAM, QD
  4. PONATINIB [Suspect]
     Active Substance: PONATINIB
  5. PONATINIB [Suspect]
     Active Substance: PONATINIB
     Dosage: 30 MILLIGRAM, QD
  6. PONATINIB [Suspect]
     Active Substance: PONATINIB
     Dosage: 15 MILLIGRAM, QD
  7. PONATINIB [Suspect]
     Active Substance: PONATINIB
     Dosage: 15 MILLIGRAM, QD
  8. PONATINIB [Suspect]
     Active Substance: PONATINIB
     Dosage: 15 MILLIGRAM, QD
  9. BLINCYTO [Suspect]
     Active Substance: BLINATUMOMAB
     Indication: Product used for unknown indication
  10. GLIMEPIRIDE [Concomitant]
     Active Substance: GLIMEPIRIDE
  11. LOPID [Concomitant]
     Active Substance: GEMFIBROZIL
  12. JARDIANCE [Concomitant]
     Active Substance: EMPAGLIFLOZIN
  13. METFORMIN HYDROCHLORIDE [Concomitant]
     Active Substance: METFORMIN HYDROCHLORIDE
  14. LORATADINE [Concomitant]
     Active Substance: LORATADINE
  15. BACLOFEN [Concomitant]
     Active Substance: BACLOFEN
  16. FLUCONAZOLE [Concomitant]
     Active Substance: FLUCONAZOLE
  17. ACYCLOVIR [Concomitant]
     Active Substance: ACYCLOVIR
  18. NOVOLOG [Concomitant]
     Active Substance: INSULIN ASPART
  19. AMLODIPINE BESYLATE [Concomitant]
     Active Substance: AMLODIPINE BESYLATE
  20. Magnesium phosphate dibasic [Concomitant]
  21. ZOFRAN [Concomitant]
     Active Substance: ONDANSETRON HYDROCHLORIDE
  22. Posaconazole delayed release [Concomitant]
  23. TACROLIMUS [Concomitant]
     Active Substance: TACROLIMUS
  24. GABAPENTIN [Concomitant]
     Active Substance: GABAPENTIN
  25. TRESIBA [Concomitant]
     Active Substance: INSULIN DEGLUDEC

REACTIONS (4)
  - Neoplasm malignant [Unknown]
  - Memory impairment [Unknown]
  - Product dose omission in error [Unknown]
  - Product dose omission issue [Unknown]
